FAERS Safety Report 11481588 (Version 3)
Quarter: 2015Q4

REPORT INFORMATION
  Report Type: Report from Study
  Country: US (occurrence: None)
  Receive Date: 20150909
  Receipt Date: 20151015
  Transmission Date: 20160304
  Serious: No
  Sender: FDA-Public Use
  Company Number: US-MDT-ADR-2015-01752

PATIENT
  Age: 57 Year
  Sex: Male

DRUGS (1)
  1. COMPOUNDED BACLOFEN INTRATHECAL (66 MCG/ML) [Suspect]
     Active Substance: BACLOFEN
     Dosage: 6.6 MCG/DAY

REACTIONS (1)
  - Implant site extravasation [None]
